FAERS Safety Report 9830350 (Version 2)
Quarter: 2014Q1

REPORT INFORMATION
  Report Type: Report from Study
  Country: US (occurrence: US)
  Receive Date: 20140120
  Receipt Date: 20140128
  Transmission Date: 20141002
  Serious: Yes (Other)
  Sender: FDA-Public Use
  Company Number: US-BAXTER-2014BAX001554

PATIENT
  Age: 31 Year
  Sex: Male
  Weight: 74.5 kg

DRUGS (2)
  1. GAMMAGARD S/D [Suspect]
     Indication: SELECTIVE IGA IMMUNODEFICIENCY
     Route: 042
  2. GAMMAGARD S/D [Suspect]
     Route: 042
     Dates: start: 1986

REACTIONS (3)
  - Pneumonia [Recovered/Resolved]
  - Non-cardiac chest pain [Recovering/Resolving]
  - Cough [Recovered/Resolved]
